FAERS Safety Report 8312073 (Version 2)
Quarter: 2012Q4

REPORT INFORMATION
  Report Type: 
  Country: US (occurrence: US)
  Receive Date: 20111227
  Receipt Date: 20121005
  Transmission Date: 20130627
  Serious: Yes (Other)
  Sender: FDA-Public Use
  Company Number: US-ROCHE-803163

PATIENT
  Age: 24 Year
  Sex: Female
  Weight: 56.75 kg

DRUGS (2)
  1. ACCUTANE [Suspect]
     Indication: ACNE CYSTIC
     Route: 065
  2. ACCUTANE [Suspect]
     Dosage: 40 mg in morning and 10 mg in evening
     Route: 065

REACTIONS (4)
  - Colitis ulcerative [Unknown]
  - Depression [Unknown]
  - Suicidal ideation [Unknown]
  - Chapped lips [Unknown]
